FAERS Safety Report 9280701 (Version 2)
Quarter: 2013Q3

REPORT INFORMATION
  Report Type: Spontaneous
  Country: US (occurrence: US)
  Receive Date: 20130509
  Receipt Date: 20130905
  Transmission Date: 20140515
  Serious: No
  Sender: FDA-Public Use
  Company Number: US-PFIZER INC-2013142630

PATIENT
  Age: 42 Year
  Sex: Female
  Weight: 81.63 kg

DRUGS (3)
  1. LYRICA [Suspect]
     Indication: PAIN
     Dosage: 100 MG, 3X/DAY
     Route: 048
  2. LYRICA [Suspect]
     Dosage: 160 OR 175 MG THREE TIMES A DAY
  3. LYRICA [Suspect]
     Dosage: 200 MG, 3X/DAY

REACTIONS (3)
  - Expired drug administered [Unknown]
  - Drug ineffective [Unknown]
  - Malaise [Unknown]
